FAERS Safety Report 6631210-0 (Version None)
Quarter: 2010Q1

REPORT INFORMATION
  Report Type: 
  Country: None (occurrence: None)
  Receive Date: 20100312
  Receipt Date: 20100309
  Transmission Date: 20100710
  Serious: Yes (Hospitalization, Other)
  Sender: FDA-Public Use
  Company Number: US-ASTRAZENECA-2007UW14871

PATIENT
  Age: 375 Month
  Sex: Female
  Weight: 88.5 kg

DRUGS (10)
  1. SEROQUEL [Suspect]
     Indication: BIPOLAR I DISORDER
     Dosage: 200 MG TO 400 MG
     Route: 048
     Dates: start: 20041101, end: 20060701
  2. SEROQUEL [Suspect]
     Dosage: 25MG-400MG
     Route: 048
     Dates: start: 20041116
  3. LITHIUM [Concomitant]
  4. WELLBUTRIN [Concomitant]
  5. ALTACE [Concomitant]
  6. ZOCOR [Concomitant]
  7. ESKALITH [Concomitant]
     Dosage: 900MG-2500MG
     Dates: start: 20041102
  8. AVANDAMET [Concomitant]
     Dosage: ONE EVERY DAY(4-1000MG STRENGTH)
     Dates: start: 20061127
  9. PHENERGAN HCL [Concomitant]
     Indication: NAUSEA
     Dosage: 50MG-100MG AS REQUIRED
     Route: 048
     Dates: start: 20060103
  10. VICODIN [Concomitant]
     Indication: PAIN
     Dosage: 1-2 TABLET AS REQUIRED
     Route: 048
     Dates: start: 20060103

REACTIONS (13)
  - ABDOMINAL PAIN [None]
  - ABDOMINAL PAIN UPPER [None]
  - BLOOD CHOLESTEROL INCREASED [None]
  - DIABETES MELLITUS [None]
  - DIABETIC COMA [None]
  - DIABETIC KETOACIDOSIS [None]
  - HYPERGLYCAEMIA [None]
  - HYPERLIPIDAEMIA [None]
  - LIGAMENT DISORDER [None]
  - LIGAMENT RUPTURE [None]
  - LIVER DISORDER [None]
  - MENISCUS LESION [None]
  - OBESITY [None]
